FAERS Safety Report 4633237-7 (Version None)
Quarter: 2005Q3

REPORT INFORMATION
  Report Type: 
  Country: None (occurrence: None)
  Receive Date: 20050412
  Receipt Date: 20050412
  Transmission Date: 20060218
  Serious: Yes (Disabling)
  Sender: FDA-Public Use
  Company Number: None

PATIENT
  Age: 67 Year
  Sex: Female
  Weight: 68.6 kg

DRUGS (2)
  1. DURAGESIC-100 [Suspect]
     Indication: ADENOMA BENIGN
     Dosage: 75 MCG Q72H
     Dates: start: 20010110
  2. DURAGESIC-100 [Suspect]
     Indication: LYMPHADENOPATHY
     Dosage: 75 MCG Q72H
     Dates: start: 20010110

REACTIONS (3)
  - DRUG INEFFECTIVE [None]
  - INADEQUATE ANALGESIA [None]
  - PHARMACEUTICAL PRODUCT COMPLAINT [None]
